FAERS Safety Report 9417196 (Version 1)
Quarter: 2013Q3

REPORT INFORMATION
  Report Type: Spontaneous
  Country: US (occurrence: US)
  Receive Date: 20130724
  Receipt Date: 20130724
  Transmission Date: 20140515
  Serious: No
  Sender: FDA-Public Use
  Company Number: US-TEVA-396675USA

PATIENT
  Age: 25 Year
  Sex: Female

DRUGS (2)
  1. PLAN B [Suspect]
     Indication: CONTRACEPTION
     Route: 048
     Dates: start: 20130204, end: 20130204
  2. NOR-QD [Concomitant]
     Indication: CONTRACEPTION
     Route: 048
     Dates: start: 20130302

REACTIONS (2)
  - Metrorrhagia [Recovered/Resolved]
  - Menstruation delayed [Not Recovered/Not Resolved]
